FAERS Safety Report 21544688 (Version 3)
Quarter: 2025Q3

REPORT INFORMATION
  Report Type: Report from Study
  Country: US (occurrence: US)
  Receive Date: 20221102
  Receipt Date: 20250710
  Transmission Date: 20251020
  Serious: Yes (Death, Other)
  Sender: JAZZ
  Company Number: US-GW PHARMA-2022-US-034193

PATIENT
  Sex: Female

DRUGS (1)
  1. EPIDIOLEX [Suspect]
     Active Substance: CANNABIDIOL
     Indication: Lennox-Gastaut syndrome
     Dosage: 1ML TWICE DAILY
     Route: 048
     Dates: start: 20221015

REACTIONS (1)
  - Death [Fatal]
